FAERS Safety Report 20913472 (Version 5)
Quarter: 2022Q3

REPORT INFORMATION
  Report Type: Spontaneous
  Country: FR (occurrence: FR)
  Receive Date: 20220603
  Receipt Date: 20220715
  Transmission Date: 20221027
  Serious: Yes (Other)
  Sender: FDA-Public Use
  Company Number: FR-INCYTE CORPORATION-2022IN005240

PATIENT

DRUGS (11)
  1. TAFASITAMAB [Suspect]
     Active Substance: TAFASITAMAB
     Indication: Diffuse large B-cell lymphoma
     Dosage: 12 MG/KG
     Route: 042
     Dates: start: 20220311, end: 20220325
  2. REVLIMID [Suspect]
     Active Substance: LENALIDOMIDE
     Indication: Product used for unknown indication
     Dosage: UNK
     Route: 065
  3. REVLIMID [Suspect]
     Active Substance: LENALIDOMIDE
     Dosage: UNK
     Route: 065
  4. REVLIMID [Suspect]
     Active Substance: LENALIDOMIDE
     Dosage: UNK
     Route: 065
  5. SOTALOL [Concomitant]
     Active Substance: SOTALOL
     Indication: Hypertension
     Dosage: 80 MILLIGRAM
     Route: 065
     Dates: start: 2020
  6. SOTALOL [Concomitant]
     Active Substance: SOTALOL
     Indication: Atrial fibrillation
  7. XARELTO [Concomitant]
     Active Substance: RIVAROXABAN
     Indication: Atrial fibrillation
     Dosage: UNK
     Route: 065
     Dates: start: 2020
  8. CRANBERRY PLUS D MANNOS [Concomitant]
     Indication: Hypertension
     Dosage: UNK
     Route: 065
     Dates: start: 2020
  9. ESOMEPRAZOLE [Concomitant]
     Active Substance: ESOMEPRAZOLE
     Indication: Gastritis
     Dosage: UNK
     Route: 065
     Dates: start: 2020
  10. OXAZEPAM [Concomitant]
     Active Substance: OXAZEPAM
     Indication: Anxiety
     Dosage: UNK
     Route: 065
     Dates: start: 2020
  11. ALFUZOSIN HYDROCHLORIDE [Concomitant]
     Active Substance: ALFUZOSIN HYDROCHLORIDE
     Indication: Dysuria
     Dosage: UNK
     Route: 065
     Dates: start: 2020

REACTIONS (13)
  - Myocardial infarction [Unknown]
  - Cardiac failure [Recovering/Resolving]
  - Acute kidney injury [Recovering/Resolving]
  - Pleural effusion [Recovering/Resolving]
  - Brain natriuretic peptide abnormal [Unknown]
  - Inflammatory pain [Unknown]
  - Crowned dens syndrome [Unknown]
  - Spinal osteoarthritis [Unknown]
  - Oedema peripheral [Recovering/Resolving]
  - Crowned dens syndrome [Unknown]
  - General physical health deterioration [Recovering/Resolving]
  - Asthenia [Unknown]
  - Back pain [Recovering/Resolving]
